FAERS Safety Report 24782556 (Version 3)
Quarter: 2025Q1

REPORT INFORMATION
  Report Type: Spontaneous
  Country: JP (occurrence: JP)
  Receive Date: 20241227
  Receipt Date: 20250127
  Transmission Date: 20250408
  Serious: Yes (Hospitalization)
  Sender: ALEXION PHARMACEUTICALS
  Company Number: JP-ASTRAZENECA-240143735_063010_P_1

PATIENT

DRUGS (4)
  1. DAPAGLIFLOZIN [Suspect]
     Active Substance: DAPAGLIFLOZIN
  2. DAPAGLIFLOZIN [Suspect]
     Active Substance: DAPAGLIFLOZIN
  3. ZIBOTENTAN [Concomitant]
     Active Substance: ZIBOTENTAN
     Route: 065
  4. ZIBOTENTAN [Concomitant]
     Active Substance: ZIBOTENTAN
     Route: 065

REACTIONS (6)
  - Vomiting [Unknown]
  - Headache [Unknown]
  - Chills [Unknown]
  - Pyrexia [Unknown]
  - Large intestine polyp [Unknown]
  - Influenza [Unknown]
